FAERS Safety Report 20844422 (Version 3)
Quarter: 2022Q3

REPORT INFORMATION
  Report Type: Spontaneous
  Country: FR (occurrence: FR)
  Receive Date: 20220518
  Receipt Date: 20220713
  Transmission Date: 20221027
  Serious: Yes (Hospitalization)
  Sender: FDA-Public Use
  Company Number: None

PATIENT
  Age: 66 Year
  Sex: Male

DRUGS (10)
  1. LENVIMA [Suspect]
     Active Substance: LENVATINIB
     Indication: Metastatic bronchial carcinoma
     Dosage: DOSE AND FREQUENCY UNKNOWN
     Route: 048
     Dates: start: 20200922
  2. LENVIMA [Suspect]
     Active Substance: LENVATINIB
     Dosage: DOSE AND FREQUENCY UNKNOWN
     Route: 048
     Dates: start: 20220113, end: 2022
  3. LENVIMA [Suspect]
     Active Substance: LENVATINIB
     Dosage: DOSE AND FREQUENCY UNKNOWN
     Route: 048
     Dates: start: 20220203, end: 202202
  4. LENVIMA [Suspect]
     Active Substance: LENVATINIB
     Dosage: DOSE AND FREQUENCY UNKNOWN
     Route: 048
     Dates: start: 20220224, end: 2022
  5. LENVIMA [Suspect]
     Active Substance: LENVATINIB
     Dosage: DOSE AND FREQUENCY UNKNOWN
     Route: 048
     Dates: start: 20220317, end: 2022
  6. LENVIMA [Suspect]
     Active Substance: LENVATINIB
     Dosage: DOSE AND FREQUENCY UNKNOWN
     Route: 048
     Dates: start: 20220407, end: 202204
  7. LENVIMA [Suspect]
     Active Substance: LENVATINIB
     Dosage: DOSE AND FREQUENCY UNKNOWN
     Route: 048
     Dates: start: 2022, end: 2022
  8. ALBUTEROL SULFATE [Concomitant]
     Active Substance: ALBUTEROL SULFATE
     Indication: Chronic obstructive pulmonary disease
     Dosage: DOSE AND FREQUENCY UNKNOWN
     Route: 055
  9. GLYCOPYRRONIUM\INDACATEROL [Concomitant]
     Active Substance: GLYCOPYRRONIUM\INDACATEROL
     Indication: Chronic obstructive pulmonary disease
     Dosage: DOSE AND FREQUENCY UNKNOWN
     Route: 055
  10. BRICANYL [Concomitant]
     Active Substance: TERBUTALINE SULFATE
     Indication: Chronic obstructive pulmonary disease
     Dosage: DOSE AND FREQUENCY UNKNOWN
     Route: 055

REACTIONS (1)
  - Pneumothorax [Recovered/Resolved]

NARRATIVE: CASE EVENT DATE: 20220301
